FAERS Safety Report 8082925-1 (Version None)
Quarter: 2012Q1

REPORT INFORMATION
  Report Type: 
  Country: None (occurrence: None)
  Receive Date: 20120127
  Receipt Date: 20110308
  Transmission Date: 20120608
  Serious: No
  Sender: FDA-Public Use
  Company Number: US-ABBOTT-11P-163-0710086-00

PATIENT
  Age: 68 Year
  Sex: Female

DRUGS (15)
  1. HYDROCODONE BITARTRATE [Concomitant]
     Indication: FIBROMYALGIA
  2. HUMIRA [Suspect]
     Indication: PSORIASIS
     Dates: start: 20101216
  3. XOPENEX [Concomitant]
     Indication: CHRONIC OBSTRUCTIVE PULMONARY DISEASE
     Dosage: MDI
  4. SPIRIVA [Concomitant]
     Indication: CHRONIC OBSTRUCTIVE PULMONARY DISEASE
  5. ADVAIR DISKUS 100/50 [Concomitant]
     Indication: CHRONIC OBSTRUCTIVE PULMONARY DISEASE
     Dosage: 250/50 TWICE A DAY
  6. OMEPRAZOLE [Concomitant]
     Indication: GASTROOESOPHAGEAL REFLUX DISEASE
  7. EFFEXOR XR [Concomitant]
     Indication: DEPRESSION
  8. CLOBETAZOLE OINTMENT .05% [Concomitant]
     Indication: PSORIASIS
  9. LIPITOR [Concomitant]
     Indication: BLOOD CHOLESTEROL INCREASED
  10. OXYBUTYNIN [Concomitant]
     Indication: INCONTINENCE
  11. LASIX [Concomitant]
     Indication: SWELLING
  12. HYDROCODONE BITARTRATE [Concomitant]
     Indication: PAIN
  13. METOPROLOL TARTRATE [Concomitant]
     Indication: HYPERTENSION
  14. FLONASE [Concomitant]
     Indication: SINUS HEADACHE
     Route: 045
  15. TRAZODONE HCL [Concomitant]
     Indication: INSOMNIA
     Dosage: AT BEDTIME

REACTIONS (3)
  - SINUS DISORDER [None]
  - INJECTION SITE PAIN [None]
  - COUGH [None]
